FAERS Safety Report 12645121 (Version 1)
Quarter: 2016Q3

REPORT INFORMATION
  Report Type: Spontaneous
  Country: HU (occurrence: HU)
  Receive Date: 20160811
  Receipt Date: 20160811
  Transmission Date: 20161109
  Serious: Yes (Hospitalization)
  Sender: FDA-Public Use
  Company Number: HU-JNJFOC-20160807609

PATIENT
  Age: 79 Year
  Sex: Female
  Weight: 85.6 kg

DRUGS (5)
  1. BISOPROLOL [Concomitant]
     Active Substance: BISOPROLOL
     Route: 065
     Dates: start: 20140404, end: 20160620
  2. SYNCUMAR [Concomitant]
     Active Substance: ACENOCOUMAROL
     Route: 065
     Dates: start: 20140414, end: 20160620
  3. VEROSPIRON [Concomitant]
     Active Substance: SPIRONOLACTONE
     Route: 065
     Dates: start: 20140414, end: 20160620
  4. ADEXOR [Concomitant]
     Route: 065
     Dates: start: 20140414, end: 20160620
  5. XARELTO [Suspect]
     Active Substance: RIVAROXABAN
     Indication: PRODUCT USED FOR UNKNOWN INDICATION
     Route: 048

REACTIONS (1)
  - Pulmonary embolism [Recovered/Resolved]

NARRATIVE: CASE EVENT DATE: 20160621
